FAERS Safety Report 7249082-2 (Version None)
Quarter: 2011Q1

REPORT INFORMATION
  Report Type: 
  Country: None (occurrence: None)
  Receive Date: 20110128
  Receipt Date: 20110121
  Transmission Date: 20110831
  Serious: Yes (Death, Hospitalization)
  Sender: FDA-Public Use
  Company Number: DE-CELGENEUS-062-21880-11011219

PATIENT
  Age: 77 Year
  Sex: Male

DRUGS (18)
  1. AZACITIDINE [Suspect]
     Indication: MYELODYSPLASTIC SYNDROME
     Route: 058
     Dates: start: 20110103, end: 20110107
  2. SYMBICORT [Concomitant]
     Dosage: 230/9A?G
     Route: 055
  3. OMEPRAZOLE [Concomitant]
     Route: 065
  4. TAMSULOSIN HCL [Concomitant]
     Route: 048
  5. FUROSEMIDE [Concomitant]
     Route: 048
  6. ALLOBETA [Concomitant]
     Route: 048
  7. VOLTAREN [Concomitant]
     Route: 048
  8. TOREM [Concomitant]
     Dosage: 10
     Route: 048
  9. APROVEL [Concomitant]
     Route: 065
  10. SPIRONOLACTONE [Concomitant]
     Dosage: 50
     Route: 065
  11. ATROVENT [Concomitant]
     Route: 055
  12. KLACID [Concomitant]
     Dosage: 200
     Route: 048
  13. REVLIMID [Suspect]
     Indication: MYELODYSPLASTIC SYNDROME
     Route: 048
     Dates: start: 20110108, end: 20110112
  14. SIMVABETA [Concomitant]
     Route: 048
  15. HCT [Concomitant]
     Route: 048
  16. LEVOTHYROXINE SODIUM [Concomitant]
     Indication: HYPOTHYROIDISM
     Route: 048
  17. CARVEDILOL [Concomitant]
     Route: 048
  18. NOVONORM [Concomitant]
     Indication: DIABETES MELLITUS
     Route: 048

REACTIONS (1)
  - PNEUMONIA [None]
